FAERS Safety Report 5526621-0 (Version None)
Quarter: 2007Q4

REPORT INFORMATION
  Report Type: 
  Country: None (occurrence: None)
  Receive Date: 20071127
  Receipt Date: 20071116
  Transmission Date: 20080405
  Serious: Yes (Hospitalization)
  Sender: FDA-Public Use
  Company Number: US-AMGEN-QUU252986

PATIENT
  Sex: Female

DRUGS (2)
  1. ENBREL [Suspect]
     Indication: PSORIATIC ARTHROPATHY
     Route: 058
     Dates: start: 20040501
  2. IMURAN [Concomitant]
     Route: 048

REACTIONS (2)
  - BLOOD ELECTROLYTES DECREASED [None]
  - CARDIAC FAILURE CONGESTIVE [None]
